FAERS Safety Report 4470915-7 (Version None)
Quarter: 2004Q4

REPORT INFORMATION
  Report Type: 
  Country: None (occurrence: None)
  Receive Date: 20041011
  Receipt Date: 20030605
  Transmission Date: 20050328
  Serious: Yes (Hospitalization, Disabling)
  Sender: FDA-Public Use
  Company Number: US-MERCK-0306USA00883

PATIENT
  Age: 67 Year
  Sex: Female

DRUGS (5)
  1. CAPTOPRIL MSD [Concomitant]
     Route: 048
  2. TOPROL-XL [Concomitant]
     Route: 048
  3. VIOXX [Suspect]
     Indication: TENDONITIS
     Route: 048
     Dates: start: 19990810, end: 20000101
  4. VIOXX [Suspect]
     Indication: PAIN IN EXTREMITY
     Route: 048
     Dates: start: 19990810, end: 20000101
  5. SPIRONOLACTONE [Concomitant]
     Route: 065

REACTIONS (33)
  - ABDOMINAL PAIN [None]
  - ADVERSE EVENT [None]
  - AMNESIA [None]
  - BENIGN COLONIC POLYP [None]
  - BLOOD PRESSURE INCREASED [None]
  - BREAST CANCER IN SITU [None]
  - BREAST PAIN [None]
  - BRONCHITIS [None]
  - BURSITIS [None]
  - CHEST PAIN [None]
  - CONTUSION [None]
  - DIZZINESS [None]
  - EXOSTOSIS [None]
  - HAEMORRHOIDS [None]
  - HYPERTENSION [None]
  - HYPERTENSIVE ENCEPHALOPATHY [None]
  - LOSS OF CONSCIOUSNESS [None]
  - NAUSEA [None]
  - OSTEOARTHRITIS [None]
  - OSTEOPOROSIS [None]
  - PAIN IN EXTREMITY [None]
  - PLANTAR FASCIITIS [None]
  - POLYTRAUMATISM [None]
  - PULMONARY FIBROSIS [None]
  - RASH [None]
  - RHINITIS [None]
  - SEASONAL ALLERGY [None]
  - SEROMA [None]
  - TENDONITIS [None]
  - TINNITUS [None]
  - TRANSIENT ISCHAEMIC ATTACK [None]
  - VERTEBROBASILAR INSUFFICIENCY [None]
  - VERTIGO POSITIONAL [None]
